FAERS Safety Report 21334732 (Version 1)
Quarter: 2022Q3

REPORT INFORMATION
  Report Type: Other
  Country: US (occurrence: US)
  Receive Date: 20220914
  Receipt Date: 20220914
  Transmission Date: 20221027
  Serious: No
  Sender: FDA-Public Use
  Company Number: US-LEADIANT BIOSCIENCES INC-2022STPI000138

PATIENT
  Sex: Female

DRUGS (1)
  1. MATULANE [Suspect]
     Active Substance: PROCARBAZINE HYDROCHLORIDE
     Indication: Brain neoplasm malignant
     Dosage: 100 MILLIGRAM, DAILY DAYS 8 TO 21 EVERY 42 DAYS
     Route: 048
     Dates: start: 20220303

REACTIONS (2)
  - Fatigue [Unknown]
  - Lethargy [Unknown]
